FAERS Safety Report 10991595 (Version 1)
Quarter: 2015Q2

REPORT INFORMATION
  Report Type: Spontaneous
  Country: US (occurrence: US)
  Receive Date: 20150406
  Receipt Date: 20150406
  Transmission Date: 20150821
  Serious: Yes (Other)
  Sender: FDA-Public Use
  Company Number: US-BAYER-2015-084066

PATIENT
  Sex: Male
  Weight: 89 kg

DRUGS (7)
  1. LIPITOR [Concomitant]
     Active Substance: ATORVASTATIN CALCIUM
     Indication: BLOOD CHOLESTEROL
     Dosage: 10 MG, UNK
     Route: 048
  2. COREG [Concomitant]
     Active Substance: CARVEDILOL
     Indication: BLOOD PRESSURE
     Dosage: 6.25 MG, QD
     Route: 048
  3. LISINOPRIL. [Concomitant]
     Active Substance: LISINOPRIL
     Indication: BLOOD PRESSURE
     Dosage: 10 MG, QD
     Route: 048
  4. NEXIUM [Concomitant]
     Active Substance: ESOMEPRAZOLE MAGNESIUM
     Indication: PROPHYLAXIS
     Dosage: 40 MG, QD
     Route: 048
     Dates: start: 201208
  5. ALEVE [Suspect]
     Active Substance: NAPROXEN SODIUM
     Dosage: UNK
     Route: 048
  6. FELDENE [Suspect]
     Active Substance: PIROXICAM
     Indication: MUSCULOSKELETAL STIFFNESS
     Dosage: TAKING ON AND OFF
     Dates: start: 2003
  7. FELDENE [Suspect]
     Active Substance: PIROXICAM
     Indication: INFLAMMATION
     Dosage: 20 MG, QD
     Route: 048
     Dates: start: 201501

REACTIONS (4)
  - Haematochezia [Unknown]
  - Abdominal pain [Unknown]
  - Flatulence [Unknown]
  - Drug ineffective [Unknown]
